FAERS Safety Report 23872975 (Version 1)
Quarter: 2024Q2

REPORT INFORMATION
  Report Type: Spontaneous
  Country: IN (occurrence: IN)
  Receive Date: 20240520
  Receipt Date: 20240520
  Transmission Date: 20240715
  Serious: Yes (Hospitalization)
  Sender: FDA-Public Use
  Company Number: IN-Axellia-005187

PATIENT
  Age: 3 Decade
  Sex: Male

DRUGS (3)
  1. POLYMYXIN B [Suspect]
     Active Substance: POLYMYXIN B
     Indication: Product used for unknown indication
     Dosage: 0.75 MILLION UNITS
  2. COLISTIMETHATE SODIUM [Concomitant]
     Active Substance: COLISTIMETHATE SODIUM
     Indication: Product used for unknown indication
     Dosage: 4.5 MILLION UNITS ON DAY 27
  3. IMIPENEM [Concomitant]
     Active Substance: IMIPENEM
     Indication: Product used for unknown indication
     Route: 042

REACTIONS (1)
  - Bartter^s syndrome [Recovered/Resolved]
